FAERS Safety Report 13183215 (Version 1)
Quarter: 2017Q1

REPORT INFORMATION
  Report Type: Spontaneous
  Country: FI (occurrence: FI)
  Receive Date: 20170203
  Receipt Date: 20170203
  Transmission Date: 20170428
  Serious: Yes (Other)
  Sender: FDA-Public Use
  Company Number: FI-SA-2017SA014848

PATIENT
  Age: 70 Year

DRUGS (2)
  1. LEFLUNOMIDE. [Suspect]
     Active Substance: LEFLUNOMIDE
     Route: 065
  2. METHOTREXATE. [Suspect]
     Active Substance: METHOTREXATE
     Route: 065

REACTIONS (4)
  - Pulmonary congestion [Unknown]
  - Opportunistic infection [Unknown]
  - Red blood cell macrocytes present [Unknown]
  - White blood cell count decreased [Unknown]
